FAERS Safety Report 5634101-7 (Version None)
Quarter: 2008Q1

REPORT INFORMATION
  Report Type: 
  Country: None (occurrence: None)
  Receive Date: 20080219
  Receipt Date: 20080201
  Transmission Date: 20080703
  Serious: Yes (Hospitalization)
  Sender: FDA-Public Use
  Company Number: DSA_31368_2008

PATIENT
  Sex: Male

DRUGS (5)
  1. LORAZEPAM [Suspect]
     Dosage: (2 MG 1X NOT THE PRESCRIBED AMOUNT. ORAL)
     Route: 048
     Dates: start: 20080123, end: 20080123
  2. CITALOPRAM (CITALOPRAM) 40 MG [Suspect]
     Dosage: (80 MG 1X NOT THE PRESCRIBED AMOUNT. ORAL)
     Route: 048
     Dates: start: 20080123, end: 20080123
  3. DOMINAL /00018902/ (DOMINAL - PROTHIPENDYL HYDROCHLORIDE) 40 MG [Suspect]
     Dosage: 80 MG 1X NOT THE PRESCRIBED AMOUNT. ORAL)
     Route: 048
     Dates: start: 20080123, end: 20080123
  4. MIRTAZAPINE [Suspect]
     Dosage: (120 MG 1X NOT THE PRESCRIBED AMOUNT. ORAL)
     Route: 048
     Dates: start: 20080123, end: 20080123
  5. TRAMADOL HCL [Suspect]
     Dosage: (3 DF 1X NOT THE PRESCRIBED AMOUNT. ORAL)
     Route: 048
     Dates: start: 20080123, end: 20080123

REACTIONS (5)
  - DRUG ABUSE [None]
  - FATIGUE [None]
  - GASTROINTESTINAL SOUNDS ABNORMAL [None]
  - HEART RATE INCREASED [None]
  - TACHYCARDIA [None]
